FAERS Safety Report 19417399 (Version 1)
Quarter: 2021Q2

REPORT INFORMATION
  Report Type: Spontaneous
  Country: US (occurrence: US)
  Receive Date: 20210614
  Receipt Date: 20210614
  Transmission Date: 20210717
  Serious: No
  Sender: FDA-Public Use
  Company Number: None

PATIENT
  Age: 47 Year
  Sex: Male
  Weight: 143 kg

DRUGS (2)
  1. WARFARIN(WARFARIN NA 10MG TAB) [Suspect]
     Active Substance: WARFARIN SODIUM
     Indication: KAWASAKI^S DISEASE
     Route: 048
     Dates: start: 20040813
  2. ASPIRIN (ASPIRIN 81MG TAB,EC) [Suspect]
     Active Substance: ASPIRIN
     Indication: KAWASAKI^S DISEASE
     Route: 048
     Dates: start: 20200414

REACTIONS (5)
  - Diverticulum [None]
  - International normalised ratio increased [None]
  - Faeces discoloured [None]
  - Haemorrhage [None]
  - Dizziness [None]

NARRATIVE: CASE EVENT DATE: 20200925
